FAERS Safety Report 20561208 (Version 1)
Quarter: 2022Q1

REPORT INFORMATION
  Report Type: Spontaneous
  Country: US (occurrence: None)
  Receive Date: 20220307
  Receipt Date: 20220307
  Transmission Date: 20220424
  Serious: Yes (Death)
  Sender: FDA-Public Use
  Company Number: None

PATIENT
  Age: 70 Year
  Sex: Male

DRUGS (1)
  1. FLUOROURACIL [Suspect]
     Active Substance: FLUOROURACIL
     Indication: Pancreatic carcinoma
     Dosage: DOSE: 500MG/10ML, EVERY 2 WEEKS (2400 MG)
     Route: 042
     Dates: start: 20210519

REACTIONS (1)
  - Death [None]

NARRATIVE: CASE EVENT DATE: 20220219
